FAERS Safety Report 9729525 (Version 2)
Quarter: 2015Q3

REPORT INFORMATION
  Report Type: Spontaneous
  Country: US (occurrence: US)
  Receive Date: 20131204
  Receipt Date: 20150804
  Transmission Date: 20151125
  Serious: No
  Sender: FDA-Public Use
  Company Number: US-GILEAD-2009-0022100

PATIENT
  Age: 55 Year
  Sex: Female
  Weight: 49.44 kg

DRUGS (16)
  1. PRILOSEC [Concomitant]
     Active Substance: OMEPRAZOLE MAGNESIUM
  2. NAMENDA [Concomitant]
     Active Substance: MEMANTINE HYDROCHLORIDE
  3. LETAIRIS [Suspect]
     Active Substance: AMBRISENTAN
     Indication: PULMONARY ARTERIAL HYPERTENSION
     Route: 048
     Dates: start: 20071008
  4. COUMADIN [Concomitant]
     Active Substance: WARFARIN SODIUM
  5. AMBIEN [Concomitant]
     Active Substance: ZOLPIDEM TARTRATE
  6. FOSAMAX [Concomitant]
     Active Substance: ALENDRONATE SODIUM
  7. ACETAMINOPHEN. [Concomitant]
     Active Substance: ACETAMINOPHEN
  8. NEXIUM [Concomitant]
     Active Substance: ESOMEPRAZOLE MAGNESIUM
  9. LEXAPRO [Concomitant]
     Active Substance: ESCITALOPRAM OXALATE
  10. REVATIO [Concomitant]
     Active Substance: SILDENAFIL CITRATE
  11. DIGOXIN. [Concomitant]
     Active Substance: DIGOXIN
  12. ALDACTONE [Concomitant]
     Active Substance: SPIRONOLACTONE
  13. TRAZODONE [Concomitant]
     Active Substance: TRAZODONE HYDROCHLORIDE
  14. VITAMIN C [Concomitant]
     Active Substance: ASCORBIC ACID
  15. LASIX [Concomitant]
     Active Substance: FUROSEMIDE
  16. CALCIUM PLUS D [Concomitant]
     Active Substance: CALCIUM\VITAMIN D

REACTIONS (7)
  - Suffocation feeling [Unknown]
  - Dyspnoea [Unknown]
  - Nasal congestion [Unknown]
  - Palpitations [Unknown]
  - Insomnia [Unknown]
  - Headache [Unknown]
  - Gastritis [Unknown]
